FAERS Safety Report 20426561 (Version 1)
Quarter: 2022Q1

REPORT INFORMATION
  Report Type: Report from Study
  Country: CA (occurrence: CA)
  Receive Date: 20220204
  Receipt Date: 20220204
  Transmission Date: 20220423
  Serious: No
  Sender: FDA-Public Use
  Company Number: CA-EXELIXIS-CABO-21045366

PATIENT
  Age: 57 Year
  Sex: Male

DRUGS (5)
  1. CABOMETYX [Suspect]
     Active Substance: CABOZANTINIB S-MALATE
     Indication: Renal cell carcinoma
     Dosage: 20 MG, QD
     Route: 048
     Dates: start: 20190818
  2. DOMPERIDONE [Concomitant]
     Active Substance: DOMPERIDONE
  3. DEXAMETHASONE [Concomitant]
     Active Substance: DEXAMETHASONE
  4. PENTAMIDINE [Concomitant]
     Active Substance: PENTAMIDINE
  5. UNSPECIFIED INGREDIENT [Concomitant]
     Active Substance: UNSPECIFIED INGREDIENT

REACTIONS (3)
  - Device dislocation [Unknown]
  - Embolism [Unknown]
  - Pain [Recovering/Resolving]

NARRATIVE: CASE EVENT DATE: 20211001
